FAERS Safety Report 6480530-1 (Version None)
Quarter: 2009Q4

REPORT INFORMATION
  Report Type: 
  Country: None (occurrence: None)
  Receive Date: 20091123
  Receipt Date: 20090803
  Transmission Date: 20100525
  Serious: No
  Sender: FDA-Public Use
  Company Number: 8049863

PATIENT
  Age: 32 Year
  Sex: Female
  Weight: 84 kg

DRUGS (5)
  1. CIMZIA [Suspect]
     Indication: CROHN'S DISEASE
     Dosage: 400 MG 1/2W SC
     Route: 058
     Dates: start: 20090521
  2. YAZ [Concomitant]
  3. SPIRONOLACTONE [Concomitant]
  4. NIZORAL [Concomitant]
  5. CALCIUM [Concomitant]

REACTIONS (1)
  - DEEP VEIN THROMBOSIS [None]
